FAERS Safety Report 20897204 (Version 2)
Quarter: 2022Q2

REPORT INFORMATION
  Report Type: Spontaneous
  Country: AR (occurrence: AR)
  Receive Date: 20220531
  Receipt Date: 20220629
  Transmission Date: 20220721
  Serious: Yes (Other)
  Sender: FDA-Public Use
  Company Number: AR-PFIZER INC-202200766170

PATIENT
  Age: 69 Year
  Sex: Male

DRUGS (1)
  1. SUTENT [Suspect]
     Active Substance: SUNITINIB MALATE
     Indication: Metastatic renal cell carcinoma
     Dosage: 37.5 MG, CYCLIC (DAILY, SCHEME 2X1)
     Dates: start: 20200106, end: 202110

REACTIONS (3)
  - Pain in extremity [Not Recovered/Not Resolved]
  - Humerus fracture [Unknown]
  - Neoplasm progression [Not Recovered/Not Resolved]
